FAERS Safety Report 7595256-0 (Version None)
Quarter: 2011Q3

REPORT INFORMATION
  Report Type: 
  Country: None (occurrence: None)
  Receive Date: 20110707
  Receipt Date: 20110621
  Transmission Date: 20111222
  Serious: No
  Sender: FDA-Public Use
  Company Number: US-B.I. PHARMACEUTICALS,INC./RIDGEFIELD-2011-BP-15981BP

PATIENT
  Age: 80 Year
  Sex: Male

DRUGS (12)
  1. SYNTHROID [Concomitant]
     Indication: HYPOTHYROIDISM
     Dosage: 75 MG
     Dates: start: 20080101
  2. CRESTOR [Concomitant]
     Indication: BLOOD CHOLESTEROL INCREASED
     Dates: start: 20080101
  3. ASPIRIN [Concomitant]
     Indication: ROUTINE HEALTH MAINTENANCE
     Dosage: 81 MG
     Dates: start: 19850101
  4. AMIODARONE HCL [Concomitant]
     Indication: ARRHYTHMIA
     Dosage: 200 MG
     Dates: start: 19950101
  5. ALLOPURINOL [Concomitant]
     Indication: RENAL TRANSPLANT
     Dosage: 300 MG
     Dates: start: 19850101
  6. METOPROLOL TARTRATE [Concomitant]
     Indication: HYPERTENSION
     Dosage: 25 MG
     Dates: start: 20060101
  7. COZAAR [Concomitant]
     Indication: BLOOD CHOLESTEROL
     Dosage: 100 MG
     Dates: start: 20090101
  8. PRADAXA [Suspect]
     Indication: ATRIAL FIBRILLATION
     Dosage: 300 MG
     Route: 048
     Dates: start: 20110603
  9. PREDNISONE [Concomitant]
     Indication: RENAL TRANSPLANT
     Dosage: 5 MG
     Dates: start: 19850101
  10. FOSAMAX [Concomitant]
     Indication: OSTEOPOROSIS
     Dosage: 70 MG
     Dates: start: 20080101
  11. PROGRAPH [Concomitant]
     Indication: RENAL TRANSPLANT
     Dosage: 1 MG
     Dates: start: 19850101
  12. AMIODARONE HCL [Concomitant]
     Indication: ATRIAL FIBRILLATION

REACTIONS (5)
  - VISION BLURRED [None]
  - MUSCLE TIGHTNESS [None]
  - HEADACHE [None]
  - CHEST PAIN [None]
  - CHEST DISCOMFORT [None]
